FAERS Safety Report 11743152 (Version 2)
Quarter: 2016Q2

REPORT INFORMATION
  Report Type: Spontaneous
  Country: US (occurrence: US)
  Receive Date: 20151116
  Receipt Date: 20160518
  Transmission Date: 20160815
  Serious: Yes (Other)
  Sender: FDA-Public Use
  Company Number: US-MDT-ADR-2015-02156

PATIENT
  Age: 35 Year
  Sex: Female

DRUGS (3)
  1. BACLOFEN. [Suspect]
     Active Substance: BACLOFEN
     Dosage: 2.667MCG/DAY
     Route: 037
  2. MORPHINE [Suspect]
     Active Substance: MORPHINE
     Dosage: 4MG/DAY
     Route: 037
  3. METHADONE [Suspect]
     Active Substance: METHADONE HYDROCHLORIDE
     Route: 048

REACTIONS (15)
  - Fatigue [Unknown]
  - Myalgia [Unknown]
  - Spinal cord injury [Unknown]
  - Sensory disturbance [Unknown]
  - Burning sensation [Unknown]
  - Disturbance in attention [Unknown]
  - Hypoaesthesia oral [Unknown]
  - Arthralgia [Unknown]
  - Muscle spasms [Unknown]
  - Nerve compression [Unknown]
  - No therapeutic response [Unknown]
  - Hypoaesthesia [Unknown]
  - Pain [Unknown]
  - Synovial cyst [Unknown]
  - Movement disorder [Unknown]

NARRATIVE: CASE EVENT DATE: 20150416
